FAERS Safety Report 8885552 (Version 1)
Quarter: 2012Q4

REPORT INFORMATION
  Report Type: 
  Country: US (occurrence: US)
  Receive Date: 20121101
  Receipt Date: 20121101
  Transmission Date: 20130627
  Serious: Yes (Disabling, Other)
  Sender: FDA-Public Use
  Company Number: US-PFIZER INC-2012269310

PATIENT
  Age: 26 Year
  Sex: Male
  Weight: 131.5 kg

DRUGS (4)
  1. LYRICA [Suspect]
     Indication: BIPOLAR DISORDER
     Dosage: 300 mg, 2x/day
     Route: 048
     Dates: start: 2007
  2. TIGAN [Concomitant]
     Dosage: UNK
  3. XANAX [Concomitant]
     Dosage: UNK
  4. LITHIUM [Concomitant]
     Dosage: UNK

REACTIONS (6)
  - Foot fracture [Unknown]
  - Gout [Unknown]
  - Abasia [Unknown]
  - Movement disorder [Unknown]
  - Oedema peripheral [Unknown]
  - Off label use [Unknown]
